FAERS Safety Report 15794056 (Version 2)
Quarter: 2019Q2

REPORT INFORMATION
  Report Type: Spontaneous
  Country: US (occurrence: US)
  Receive Date: 20190107
  Receipt Date: 20190401
  Transmission Date: 20190711
  Serious: No
  Sender: FDA-Public Use
  Company Number: US-SA-2019SA002271

PATIENT
  Age: 28 Year
  Sex: Male
  Weight: 66 kg

DRUGS (2)
  1. LANTUS [Suspect]
     Active Substance: INSULIN GLARGINE
     Indication: TYPE 1 DIABETES MELLITUS
     Dosage: 18 U, QD
     Route: 065
  2. APIDRA [Suspect]
     Active Substance: INSULIN GLULISINE
     Indication: TYPE 1 DIABETES MELLITUS
     Dosage: 8 TO 12 UNITS DAILY FOR 3 TO 5 TIMES
     Route: 065
     Dates: start: 20100615

REACTIONS (1)
  - Product contamination with body fluid [Unknown]

NARRATIVE: CASE EVENT DATE: 20181215
